FAERS Safety Report 9328897 (Version 1)
Quarter: 2013Q2

REPORT INFORMATION
  Report Type: Spontaneous
  Country: US (occurrence: US)
  Receive Date: 20130604
  Receipt Date: 20130604
  Transmission Date: 20140414
  Serious: No
  Sender: FDA-Public Use
  Company Number: US-SANOFI-AVENTIS-2013SA038937

PATIENT
  Sex: Male

DRUGS (3)
  1. LANTUS SOLOSTAR [Suspect]
     Indication: TYPE 2 DIABETES MELLITUS
     Dosage: FREQUENCY- ONCE PM DOSE:25 UNIT(S)
     Route: 051
  2. SOLOSTAR [Suspect]
     Indication: TYPE 2 DIABETES MELLITUS
  3. INSULIN [Suspect]

REACTIONS (5)
  - Renal disorder [Unknown]
  - Local swelling [Unknown]
  - Paraesthesia [Unknown]
  - Blood glucose increased [Unknown]
  - Blood glucose decreased [Unknown]
